FAERS Safety Report 11682713 (Version 3)
Quarter: 2016Q3

REPORT INFORMATION
  Report Type: Spontaneous
  Country: JP (occurrence: JP)
  Receive Date: 20151029
  Receipt Date: 20160712
  Transmission Date: 20161109
  Serious: Yes (Death, Hospitalization, Other)
  Sender: FDA-Public Use
  Company Number: JP-BRISTOL-MYERS SQUIBB COMPANY-BMS-2015-073485

PATIENT
  Age: 67 Year
  Sex: Male

DRUGS (8)
  1. OPDIVO [Suspect]
     Active Substance: NIVOLUMAB
     Dosage: UNK
     Route: 041
     Dates: start: 2015, end: 2015
  2. OPDIVO [Suspect]
     Active Substance: NIVOLUMAB
     Indication: MALIGNANT MELANOMA
     Dosage: UNK
     Route: 041
     Dates: start: 20150701, end: 20150701
  3. OPDIVO [Suspect]
     Active Substance: NIVOLUMAB
     Dosage: 2 MG/KG, UNK
     Route: 041
     Dates: start: 20151126, end: 20151126
  4. OPDIVO [Suspect]
     Active Substance: NIVOLUMAB
     Dosage: 140 MG, UNK
     Route: 041
     Dates: start: 20150813, end: 20150813
  5. OPDIVO [Suspect]
     Active Substance: NIVOLUMAB
     Dosage: 140 MG, UNK
     Route: 041
     Dates: start: 20150925, end: 20150925
  6. OPDIVO [Suspect]
     Active Substance: NIVOLUMAB
     Dosage: 2 MG/KG, UNK
     Route: 041
     Dates: start: 20151105, end: 20151105
  7. OPDIVO [Suspect]
     Active Substance: NIVOLUMAB
     Dosage: 2 MG/KG, UNK
     Route: 041
     Dates: start: 20151217, end: 20151217
  8. OPDIVO [Suspect]
     Active Substance: NIVOLUMAB
     Dosage: 140 MG, UNK
     Route: 041
     Dates: start: 20150903, end: 20150903

REACTIONS (2)
  - Pneumonia bacterial [Recovered/Resolved]
  - Malignant neoplasm progression [Fatal]

NARRATIVE: CASE EVENT DATE: 20151006
